FAERS Safety Report 7138551-1 (Version None)
Quarter: 2010Q4

REPORT INFORMATION
  Report Type: 
  Country: None (occurrence: None)
  Receive Date: 20101118
  Receipt Date: 20101103
  Transmission Date: 20110411
  Serious: Yes (Hospitalization)
  Sender: FDA-Public Use
  Company Number: 1000017278

PATIENT
  Age: 80 Year
  Sex: Female
  Weight: 70 kg

DRUGS (3)
  1. CITALOPRAM HYDROBROMIDE [Suspect]
     Indication: DEPRESSION
     Dosage: 20 MG (20 MG, 1 IN 1 D), ORAL
     Route: 048
     Dates: start: 20100925, end: 20101011
  2. AMISULPRIDE (AMISULPRIDE) [Suspect]
     Indication: DEPRESSION
     Dosage: 50 MG (50 MG, 1 IN 1 D), ORAL
     Route: 048
     Dates: start: 20100929, end: 20101011
  3. METHOTREXATE [Concomitant]

REACTIONS (1)
  - NEUTROPENIA [None]
